FAERS Safety Report 9056480 (Version 1)
Quarter: 2013Q1

REPORT INFORMATION
  Report Type: Spontaneous
  Country: US (occurrence: US)
  Receive Date: 20130204
  Receipt Date: 20130204
  Transmission Date: 20140127
  Serious: No
  Sender: FDA-Public Use
  Company Number: US-PFIZER INC-2013045154

PATIENT
  Age: 64 Year
  Sex: Female
  Weight: 42.18 kg

DRUGS (4)
  1. LYRICA [Suspect]
     Indication: ARTHRALGIA
     Dosage: 75 MG, DAILY
     Dates: start: 20130131
  2. LYRICA [Suspect]
     Indication: PAIN IN EXTREMITY
  3. NORCO [Suspect]
     Indication: ARTHRALGIA
     Dosage: 7.5/325MG, EVERY 6 HOURS
     Dates: start: 2012
  4. NORCO [Suspect]
     Indication: PAIN IN EXTREMITY

REACTIONS (2)
  - Dizziness [Recovered/Resolved]
  - Drug ineffective [Unknown]
